FAERS Safety Report 6729986-7 (Version None)
Quarter: 2010Q2

REPORT INFORMATION
  Report Type: 
  Country: None (occurrence: None)
  Receive Date: 20100513
  Receipt Date: 20100429
  Transmission Date: 20101027
  Serious: Yes (Hospitalization)
  Sender: FDA-Public Use
  Company Number: ADR-UNK-066

PATIENT
  Age: 17 Year
  Sex: Male

DRUGS (8)
  1. AMOXICILLIN [Suspect]
  2. CARBAMAZEPINE [Suspect]
  3. ZONISAMIDE [Suspect]
     Dates: start: 20070501
  4. PL GRANULES [Concomitant]
  5. HYDROCORTISONE SODIUM SUCCINATE [Concomitant]
  6. PREDNISOLONE [Concomitant]
  7. METHYLPREDNISOLONE [Concomitant]
  8. POLYGAM S/D [Concomitant]

REACTIONS (10)
  - ALANINE AMINOTRANSFERASE INCREASED [None]
  - ASPARTATE AMINOTRANSFERASE INCREASED [None]
  - BLOOD IMMUNOGLOBULIN G INCREASED [None]
  - BLOOD LACTATE DEHYDROGENASE INCREASED [None]
  - BLOOD URINE PRESENT [None]
  - CONJUNCTIVAL PALLOR [None]
  - DRUG RASH WITH EOSINOPHILIA AND SYSTEMIC SYMPTOMS [None]
  - GAMMA-GLUTAMYLTRANSFERASE INCREASED [None]
  - PROTEIN URINE PRESENT [None]
  - TOXIC EPIDERMAL NECROLYSIS [None]
